FAERS Safety Report 6902130-9 (Version None)
Quarter: 2010Q3

REPORT INFORMATION
  Report Type: 
  Country: None (occurrence: None)
  Receive Date: 20100803
  Receipt Date: 20100727
  Transmission Date: 20110219
  Serious: Yes (Hospitalization)
  Sender: FDA-Public Use
  Company Number: US-GILEAD-2010-0030683

PATIENT
  Sex: Female

DRUGS (23)
  1. LETAIRIS [Suspect]
     Indication: PULMONARY ARTERIAL HYPERTENSION
     Route: 048
     Dates: start: 20080305
  2. REMODULIN [Concomitant]
  3. MYCELEX [Concomitant]
  4. NORVASC [Concomitant]
  5. OXYGEN [Concomitant]
  6. NIACIN [Concomitant]
  7. DETROL [Concomitant]
  8. CELEBREX [Concomitant]
  9. SIMVASTATIN [Concomitant]
  10. NITRO-BID 2% OINTMENT [Concomitant]
  11. SYMBICORT [Concomitant]
  12. LEVOTHYROXINE SODIUM [Concomitant]
  13. VITAMIN E [Concomitant]
  14. ASPIRIN [Concomitant]
  15. VITAMIN B-12 [Concomitant]
  16. ASCORBIC ACID [Concomitant]
  17. FISH OIL [Concomitant]
  18. ECK FIBER CAPLET [Concomitant]
  19. MULTI-VITAMIN [Concomitant]
  20. CHOLINE [Concomitant]
  21. MILK THISTLE [Concomitant]
  22. PLAVIX [Concomitant]
  23. PRILOSEC [Concomitant]

REACTIONS (1)
  - PNEUMONIA [None]
